FAERS Safety Report 9133445 (Version 1)
Quarter: 2013Q1

REPORT INFORMATION
  Report Type: Spontaneous
  Country: FR (occurrence: FR)
  Receive Date: 20130301
  Receipt Date: 20130301
  Transmission Date: 20140127
  Serious: Yes (Other)
  Sender: FDA-Public Use
  Company Number: FR-ASTRAZENECA-2013SE11470

PATIENT
  Age: 20053 Day
  Sex: Female

DRUGS (2)
  1. XEROQUEL [Suspect]
     Indication: SCHIZOAFFECTIVE DISORDER DEPRESSIVE TYPE
     Route: 048
     Dates: start: 20120816
  2. XEROQUEL [Suspect]
     Indication: SCHIZOAFFECTIVE DISORDER DEPRESSIVE TYPE
     Route: 048
     Dates: start: 20130111

REACTIONS (5)
  - Jaundice [Unknown]
  - Nausea [Unknown]
  - Sedation [Unknown]
  - Constipation [Unknown]
  - Transaminases increased [Recovered/Resolved]
